FAERS Safety Report 13792190 (Version 1)
Quarter: 2017Q3

REPORT INFORMATION
  Report Type: Spontaneous
  Country: US (occurrence: US)
  Receive Date: 20170725
  Receipt Date: 20170725
  Transmission Date: 20171127
  Serious: Yes (Death)
  Sender: FDA-Public Use
  Company Number: None

PATIENT
  Age: 69 Year
  Sex: Male

DRUGS (1)
  1. REVLIMID [Suspect]
     Active Substance: LENALIDOMIDE
     Indication: PLASMA CELL MYELOMA
     Dosage: 10MG DAILY X14D/21D ORAL
     Route: 048

REACTIONS (9)
  - Cardiogenic shock [None]
  - Pulmonary oedema [None]
  - Ileus [None]
  - Amyloidosis [None]
  - Thrombosis [None]
  - Acute kidney injury [None]
  - Obstruction [None]
  - Thrombocytopenia [None]
  - Haematuria [None]

NARRATIVE: CASE EVENT DATE: 20150224
